FAERS Safety Report 7168156-8 (Version None)
Quarter: 2010Q4

REPORT INFORMATION
  Report Type: 
  Country: None (occurrence: None)
  Receive Date: 20101216
  Receipt Date: 20101209
  Transmission Date: 20110411
  Serious: Yes (Death, Life-Threatening, Hospitalization, Other)
  Sender: FDA-Public Use
  Company Number: US-CELGENEUS-163-21880-10113189

PATIENT
  Sex: Male
  Weight: 73.8 kg

DRUGS (20)
  1. REVLIMID [Suspect]
     Route: 048
     Dates: start: 20100223, end: 20100921
  2. ACYCLOVIR SODIUM [Concomitant]
     Route: 048
  3. AMBIEN [Concomitant]
     Route: 048
  4. CARVEDILOL [Concomitant]
     Route: 048
  5. ASPIRIN [Concomitant]
     Route: 048
  6. METFORMIN [Concomitant]
     Route: 048
  7. FAMOTIDINE [Concomitant]
     Route: 051
  8. CEFTAZIDIME [Concomitant]
     Route: 051
  9. VANCOMYCIN HCL [Concomitant]
     Route: 051
  10. PENICILLIN G POTASSIUM [Concomitant]
     Route: 051
  11. CLINDAMYCIN PHOSPHATE [Concomitant]
     Route: 051
  12. FLAGYL [Concomitant]
     Route: 051
  13. MICAFUNGIN [Concomitant]
     Route: 051
  14. DOXYCYCLINE HYCLATE [Concomitant]
     Route: 051
  15. AMIODARONE [Concomitant]
     Route: 051
  16. AMIODARONE [Concomitant]
     Dosage: 0.5 MG/MIN ID D5W CONTINUOUS
     Route: 051
  17. AMIODARONE [Concomitant]
     Dosage: 1MG/MIN ID D5W X6 H
     Route: 051
  18. MAGNESIUM SULFATE [Concomitant]
     Route: 051
  19. CALCIUM CHLORIDE [Concomitant]
     Route: 051
  20. ALBUMIN (HUMAN) [Concomitant]
     Route: 051

REACTIONS (2)
  - PNEUMONIA [None]
  - SEPTIC SHOCK [None]
